FAERS Safety Report 11177041 (Version 1)
Quarter: 2015Q2

REPORT INFORMATION
  Report Type: Spontaneous
  Country: US (occurrence: US)
  Receive Date: 20150610
  Receipt Date: 20150610
  Transmission Date: 20150821
  Serious: No
  Sender: FDA-Public Use
  Company Number: US-SHIRE-US201505478

PATIENT
  Sex: Female

DRUGS (3)
  1. VANCOMYCIN [Concomitant]
     Active Substance: VANCOMYCIN
     Indication: ANTIBIOTIC PROPHYLAXIS
     Dosage: 250 MG, 4X/DAY:QID(250 MG/5ML SUSPENSION VIA G TUBE)
     Route: 050
  2. PENTASA [Suspect]
     Active Substance: MESALAMINE
     Indication: DIARRHOEA
     Dosage: 500 MG, 4X/DAY:QID(EVERY 6 HOURS)
     Route: 050
     Dates: start: 2015
  3. ACTONEL [Concomitant]
     Active Substance: RISEDRONATE SODIUM
     Indication: BONE DISORDER
     Dosage: UNK, UNKNOWN
     Route: 065

REACTIONS (4)
  - Medication residue present [Not Recovered/Not Resolved]
  - Wrong technique in drug usage process [Not Recovered/Not Resolved]
  - Product use issue [Not Recovered/Not Resolved]
  - Incorrect dose administered [Not Recovered/Not Resolved]

NARRATIVE: CASE EVENT DATE: 2015
